FAERS Safety Report 13591695 (Version 3)
Quarter: 2017Q3

REPORT INFORMATION
  Report Type: Spontaneous
  Country: JP (occurrence: JP)
  Receive Date: 20170530
  Receipt Date: 20170906
  Transmission Date: 20171127
  Serious: Yes (Hospitalization)
  Sender: FDA-Public Use
  Company Number: JP-ASTRAZENECA-2017SE56053

PATIENT
  Age: 814 Month
  Sex: Male
  Weight: 46 kg

DRUGS (7)
  1. AMINOLEBAN EN [Concomitant]
     Active Substance: UNSPECIFIED INGREDIENT
     Indication: HEPATIC CIRRHOSIS
     Route: 048
     Dates: start: 20161101, end: 20161205
  2. NEXIUM [Suspect]
     Active Substance: ESOMEPRAZOLE MAGNESIUM
     Indication: GASTRIC ULCER HAEMORRHAGE
     Route: 048
     Dates: start: 20170216, end: 20170407
  3. SPIRONOLACTONE. [Concomitant]
     Active Substance: SPIRONOLACTONE
     Indication: HEPATIC CIRRHOSIS
     Route: 048
     Dates: start: 20160915, end: 20160930
  4. FUROSEMIDE. [Concomitant]
     Active Substance: FUROSEMIDE
     Indication: HEPATIC CIRRHOSIS
     Route: 048
     Dates: start: 20160915, end: 20160930
  5. JANUVIA [Concomitant]
     Active Substance: SITAGLIPTIN PHOSPHATE
     Indication: DIABETES MELLITUS
     Route: 048
     Dates: start: 20161105, end: 20161118
  6. NEXIUM [Suspect]
     Active Substance: ESOMEPRAZOLE MAGNESIUM
     Indication: GASTRIC ULCER HAEMORRHAGE
     Route: 048
     Dates: start: 20160814, end: 20161101
  7. DIFLUCAN [Concomitant]
     Active Substance: FLUCONAZOLE
     Indication: GASTROINTESTINAL CANDIDIASIS
     Route: 048
     Dates: start: 20161101, end: 20161129

REACTIONS (4)
  - Liver disorder [Recovering/Resolving]
  - Generalised oedema [Recovered/Resolved]
  - Hypothyroidism [Not Recovered/Not Resolved]
  - Cellulitis [Recovered/Resolved]

NARRATIVE: CASE EVENT DATE: 20160915
